FAERS Safety Report 10200316 (Version 2)
Quarter: 2014Q2

REPORT INFORMATION
  Report Type: Spontaneous
  Country: US (occurrence: US)
  Receive Date: 20140527
  Receipt Date: 20140611
  Transmission Date: 20141212
  Serious: Yes (Life-Threatening, Hospitalization)
  Sender: FDA-Public Use
  Company Number: PHEH2014US010488

PATIENT
  Age: 48 Year
  Sex: Female
  Weight: 79.37 kg

DRUGS (7)
  1. FANAPT [Suspect]
     Indication: PSYCHOTIC DISORDER
     Dosage: 1 DF PER DAY
     Route: 048
     Dates: start: 20140214, end: 20140428
  2. FANAPT [Suspect]
     Indication: BIPOLAR DISORDER
     Dosage: UNK UKN, UNK
     Route: 048
  3. KEPPRA [Concomitant]
     Indication: CONVULSION
     Dosage: 500 MG, BID
     Route: 048
     Dates: start: 20140401
  4. GABAPENTIN [Concomitant]
     Indication: CONVULSION
     Dosage: 600 MG, TID
     Route: 048
  5. LISINOPRIL [Concomitant]
     Indication: HYPERTENSION
     Dosage: 10 MG, QD
     Route: 048
     Dates: start: 201403
  6. THORAZINE [Concomitant]
     Indication: BIPOLAR DISORDER
     Dosage: 400 MG, QHS
     Route: 048
  7. THORAZINE [Concomitant]
     Indication: PSYCHOTIC DISORDER

REACTIONS (8)
  - Rhabdomyolysis [Recovered/Resolved]
  - Renal failure acute [Recovered/Resolved]
  - Dysuria [Unknown]
  - Mental status changes [Recovered/Resolved]
  - Pneumonitis [Recovered/Resolved]
  - Dyspnoea [Unknown]
  - Asthenia [Unknown]
  - Myalgia [Unknown]
